FAERS Safety Report 12757000 (Version 2)
Quarter: 2016Q4

REPORT INFORMATION
  Report Type: Spontaneous
  Country: JP (occurrence: JP)
  Receive Date: 20160918
  Receipt Date: 20161018
  Transmission Date: 20170207
  Serious: Yes (Hospitalization, Other)
  Sender: FDA-Public Use
  Company Number: JP-UCBSA-2016035187

PATIENT
  Age: 7 Decade
  Sex: Male

DRUGS (16)
  1. SODIUM VALPROATE [Suspect]
     Active Substance: VALPROATE SODIUM
     Indication: EPILEPSY
     Dosage: 1200 MG/DAY
     Route: 048
  2. WARFARIN [Concomitant]
     Active Substance: WARFARIN
     Dosage: DOSE ADJUSTED
  3. FULCALIQ [Concomitant]
     Active Substance: AMINO ACIDS\CARBOHYDRATES\ELECTROLYTES NOS\VITAMINS
     Indication: PARENTERAL NUTRITION
  4. MENATETRENONE [Concomitant]
     Active Substance: MENATETRENONE
     Indication: PARENTERAL NUTRITION
     Dosage: 20 MG
     Route: 042
  5. LEVETIRACETAM. [Suspect]
     Active Substance: LEVETIRACETAM
     Indication: EPILEPSY
     Dosage: 2000 MG/DAY
     Route: 048
  6. WARFARIN [Concomitant]
     Active Substance: WARFARIN
     Dosage: 1.5 MG
  7. WARFARIN [Concomitant]
     Active Substance: WARFARIN
     Indication: ATRIAL FIBRILLATION
     Dosage: UNKNOWN DOSE
     Route: 048
  8. WARFARIN [Concomitant]
     Active Substance: WARFARIN
     Dosage: 2 MG
  9. LAMOTRIGINE. [Suspect]
     Active Substance: LAMOTRIGINE
     Indication: EPILEPSY
     Dosage: 400 MG/DAY
     Route: 048
  10. HEPARIN [Concomitant]
     Active Substance: HEPARIN SODIUM
     Indication: PARENTERAL NUTRITION
     Dosage: UNKNOWN DOSE
     Route: 041
  11. FULCALIQ [Concomitant]
     Active Substance: AMINO ACIDS\CARBOHYDRATES\ELECTROLYTES NOS\VITAMINS
     Indication: PNEUMONIA ASPIRATION
  12. PN TWIN [Concomitant]
     Indication: PARENTERAL NUTRITION
     Dosage: UNKNOWN DOSE
  13. PN TWIN [Concomitant]
     Dosage: UNKNOWN DOSE
  14. VITAMIN B1 [Concomitant]
     Active Substance: THIAMINE HYDROCHLORIDE
     Indication: PARENTERAL NUTRITION
     Dosage: UNKNOWN DOSE
  15. PANVITAN [Concomitant]
     Indication: PARENTERAL NUTRITION
     Dosage: UNKNOWN DOSE
     Route: 048
  16. M.V.I.-12 [Concomitant]
     Active Substance: .ALPHA.-TOCOPHEROL\ASCORBIC ACID\BIOTIN\CYANOCOBALAMIN\DEXPANTHENOL\ERGOCALCIFEROL\FOLIC ACID\NIACINAMIDE\PYRIDOXINE HYDROCHLORIDE\RIBOFLAVIN 5^-PHOSPHATE SODIUM\THIAMINE HYDROCHLORIDE\VITAMIN A
     Indication: PARENTERAL NUTRITION
     Dosage: UNKNOWN DOSE

REACTIONS (1)
  - Platelet count decreased [Unknown]
